FAERS Safety Report 5796235-6 (Version None)
Quarter: 2008Q3

REPORT INFORMATION
  Report Type: 
  Country: None (occurrence: None)
  Receive Date: 20080701
  Receipt Date: 20080626
  Transmission Date: 20090109
  Serious: Yes (Death, Other)
  Sender: FDA-Public Use
  Company Number: US-ROCHE-572838

PATIENT
  Sex: Male

DRUGS (2)
  1. XELODA [Suspect]
     Route: 065
     Dates: start: 20080502, end: 20080514
  2. XELODA [Suspect]
     Route: 065
     Dates: start: 20080522, end: 20080603

REACTIONS (2)
  - OESOPHAGEAL CARCINOMA [None]
  - PAIN IN EXTREMITY [None]
